FAERS Safety Report 19005098 (Version 1)
Quarter: 2021Q1

REPORT INFORMATION
  Report Type: Spontaneous
  Country: US (occurrence: US)
  Receive Date: 20210312
  Receipt Date: 20210312
  Transmission Date: 20210420
  Serious: Yes (Hospitalization, Other)
  Sender: FDA-Public Use
  Company Number: US-SA-2021SA081192

PATIENT
  Age: 16 Year
  Sex: Male

DRUGS (1)
  1. INSULIN LISPRO [Suspect]
     Active Substance: INSULIN LISPRO
     Indication: TYPE 1 DIABETES MELLITUS
     Dosage: TOTAL OF 14.5 UNITS OF INSULIN VIA HIS PUMP
     Route: 065

REACTIONS (15)
  - Pyrexia [Unknown]
  - Eye movement disorder [Unknown]
  - Abdominal distension [Unknown]
  - Head titubation [Unknown]
  - Overdose [Unknown]
  - Pulse absent [Unknown]
  - Hypertension [Unknown]
  - Cyanosis [Unknown]
  - Hypokinesia [Unknown]
  - Areflexia [Unknown]
  - Ventricular fibrillation [Unknown]
  - Lung consolidation [Unknown]
  - Seizure [Recovered/Resolved]
  - Cardiac arrest [Unknown]
  - Unresponsive to stimuli [Unknown]
